FAERS Safety Report 6544306-9 (Version None)
Quarter: 2010Q1

REPORT INFORMATION
  Report Type: 
  Country: None (occurrence: None)
  Receive Date: 20100120
  Receipt Date: 20100120
  Transmission Date: 20100710
  Serious: No
  Sender: FDA-Public Use
  Company Number: None

PATIENT
  Age: 70 Year
  Sex: Female
  Weight: 50.8029 kg

DRUGS (1)
  1. ALLENDRONATE 70 MILLIGRAMS TEVA PHARMACEUTICALS [Suspect]
     Indication: OSTEOPOROSIS
     Dosage: 70 MILLIGRAMS ONCE A WEEK PO
     Route: 048
     Dates: start: 20100114, end: 20100116

REACTIONS (6)
  - DIARRHOEA [None]
  - DYSGEUSIA [None]
  - DYSPHAGIA [None]
  - EATING DISORDER [None]
  - MALAISE [None]
  - UNEVALUABLE EVENT [None]
